FAERS Safety Report 13068732 (Version 1)
Quarter: 2016Q4

REPORT INFORMATION
  Report Type: Spontaneous
  Country: US (occurrence: US)
  Receive Date: 20161228
  Receipt Date: 20161228
  Transmission Date: 20170207
  Serious: Yes (Hospitalization, Other)
  Sender: FDA-Public Use
  Company Number: US-SA-2016SA235338

PATIENT
  Age: 41 Year
  Sex: Male
  Weight: 70 kg

DRUGS (28)
  1. BENADRYL [Concomitant]
     Active Substance: DIPHENHYDRAMINE HYDROCHLORIDE
     Indication: PREMEDICATION
     Route: 048
  2. SERTRALINE [Concomitant]
     Active Substance: SERTRALINE HYDROCHLORIDE
  3. COZAAR [Concomitant]
     Active Substance: LOSARTAN POTASSIUM
     Route: 048
  4. LYRICA [Concomitant]
     Active Substance: PREGABALIN
     Route: 048
  5. CATAPRES [Concomitant]
     Active Substance: CLONIDINE HYDROCHLORIDE
     Route: 048
     Dates: end: 20120821
  6. NAPROSYN [Concomitant]
     Active Substance: NAPROXEN
  7. PLAVIX [Concomitant]
     Active Substance: CLOPIDOGREL BISULFATE
     Route: 048
     Dates: start: 20120121, end: 20121011
  8. NORTRIPTYLINE [Concomitant]
     Active Substance: NORTRIPTYLINE
     Route: 048
  9. PRILOSEC [Concomitant]
     Active Substance: OMEPRAZOLE MAGNESIUM
     Route: 048
  10. FABRAZYME [Suspect]
     Active Substance: AGALSIDASE BETA
     Indication: FABRY^S DISEASE
     Route: 041
  11. TYLENOL [Concomitant]
     Active Substance: ACETAMINOPHEN
     Indication: PREMEDICATION
     Route: 048
  12. PHENERGAN [Concomitant]
     Active Substance: PROMETHAZINE HYDROCHLORIDE
     Indication: NAUSEA
     Route: 048
  13. LISINOPRIL. [Concomitant]
     Active Substance: LISINOPRIL
     Route: 048
     Dates: end: 20130926
  14. EPITOL [Concomitant]
     Active Substance: CARBAMAZEPINE
     Dosage: 200 MG TAB- 3 TABS BID
  15. NIZORAL [Concomitant]
     Active Substance: KETOCONAZOLE
     Indication: SKIN DISORDER
  16. RELAFEN [Concomitant]
     Active Substance: NABUMETONE
     Route: 048
  17. FLEXERIL [Concomitant]
     Active Substance: CYCLOBENZAPRINE HYDROCHLORIDE
     Route: 048
  18. LISINOPRIL. [Concomitant]
     Active Substance: LISINOPRIL
     Route: 048
  19. TRAMADOL. [Concomitant]
     Active Substance: TRAMADOL
  20. SINGULAIR [Concomitant]
     Active Substance: MONTELUKAST SODIUM
     Route: 048
  21. ERYTHROMYCIN ETHYLSUCCINATE. [Concomitant]
     Active Substance: ERYTHROMYCIN ETHYLSUCCINATE
     Route: 048
     Dates: end: 20120821
  22. MARINOL [Concomitant]
     Active Substance: DRONABINOL
     Indication: PAIN
     Route: 048
     Dates: start: 20120127, end: 20121224
  23. NORCO [Concomitant]
     Active Substance: ACETAMINOPHEN\HYDROCODONE BITARTRATE
     Route: 048
  24. KLONOPIN [Concomitant]
     Active Substance: CLONAZEPAM
     Dates: end: 20120821
  25. CIPRO [Concomitant]
     Active Substance: CIPROFLOXACIN HYDROCHLORIDE
     Route: 048
     Dates: end: 20120821
  26. WELLBUTRIN [Concomitant]
     Active Substance: BUPROPION HYDROCHLORIDE
     Route: 048
  27. CETIRIZINE [Concomitant]
     Active Substance: CETIRIZINE HYDROCHLORIDE
     Route: 048
  28. NEURONTIN [Concomitant]
     Active Substance: GABAPENTIN
     Route: 048

REACTIONS (45)
  - Nausea [Unknown]
  - Back pain [Unknown]
  - Hypoaesthesia [Unknown]
  - Muscular weakness [Unknown]
  - Vision blurred [Unknown]
  - Condition aggravated [Unknown]
  - Vomiting [Unknown]
  - Urticaria [Unknown]
  - Rash [Unknown]
  - Arthralgia [Unknown]
  - Chest pain [Unknown]
  - Tinnitus [Unknown]
  - Depression [Unknown]
  - Paraesthesia [Unknown]
  - Balance disorder [Unknown]
  - Chest discomfort [Unknown]
  - Infusion related reaction [Unknown]
  - Pruritus [Unknown]
  - Headache [Unknown]
  - Anaphylactic reaction [Unknown]
  - Temperature intolerance [Unknown]
  - Joint swelling [Unknown]
  - Multiple fractures [Unknown]
  - Peripheral swelling [Unknown]
  - Cognitive disorder [Unknown]
  - Joint stiffness [Unknown]
  - Upper respiratory tract infection [Unknown]
  - Dyspnoea [Unknown]
  - Blindness transient [Unknown]
  - Gait disturbance [Unknown]
  - Fungal infection [Unknown]
  - Fatigue [Unknown]
  - Dizziness [Unknown]
  - Pruritus [Unknown]
  - Foot fracture [Unknown]
  - Cerebrovascular accident [Unknown]
  - Amnesia [Unknown]
  - Oropharyngeal pain [Unknown]
  - Diplopia [Unknown]
  - Skin haemorrhage [Unknown]
  - Burning sensation [Unknown]
  - Dyskinesia [Unknown]
  - Weight fluctuation [Unknown]
  - Myalgia [Unknown]
  - Pain in extremity [Unknown]

NARRATIVE: CASE EVENT DATE: 201111
